FAERS Safety Report 5934931-8 (Version None)
Quarter: 2008Q4

REPORT INFORMATION
  Report Type: 
  Country: None (occurrence: None)
  Receive Date: 20081027
  Receipt Date: 20081017
  Transmission Date: 20090506
  Serious: Yes (Other)
  Sender: FDA-Public Use
  Company Number: ADE2008-0356

PATIENT
  Age: 49 Year
  Sex: Male

DRUGS (3)
  1. SIMVASTATIN [Suspect]
     Indication: BLOOD CHOLESTEROL INCREASED
     Dosage: 40 MG PO
     Route: 048
     Dates: start: 20070228, end: 20070428
  2. ASPIRIN [Concomitant]
  3. FLUOXETINE [Concomitant]

REACTIONS (2)
  - DEPRESSION [None]
  - SUICIDAL IDEATION [None]
